FAERS Safety Report 8990395 (Version 2)
Quarter: 2013Q1

REPORT INFORMATION
  Report Type: Spontaneous
  Country: JP (occurrence: JP)
  Receive Date: 20121228
  Receipt Date: 20130131
  Transmission Date: 20140127
  Serious: Yes (Hospitalization)
  Sender: FDA-Public Use
  Company Number: JP-ASTRAZENECA-2012SE95578

PATIENT
  Age: 71 Year
  Sex: Female

DRUGS (2)
  1. ANAPEINE [Suspect]
     Indication: EPIDURAL ANAESTHESIA
     Dosage: 2 MG/ML
     Route: 008
     Dates: start: 20121213
  2. FENTANYL [Concomitant]
     Dosage: 10 A
     Route: 008
     Dates: start: 20121213

REACTIONS (2)
  - Diplegia [Not Recovered/Not Resolved]
  - Spinal cord infarction [Not Recovered/Not Resolved]
